FAERS Safety Report 23987176 (Version 1)
Quarter: 2024Q2

REPORT INFORMATION
  Report Type: Other
  Country: US (occurrence: US)
  Receive Date: 20240618
  Receipt Date: 20240618
  Transmission Date: 20240716
  Serious: Yes (Life-Threatening, Hospitalization, Other)
  Sender: FDA-Public Use
  Company Number: US-CorePharma LLC-2158262

PATIENT
  Age: 39 Year
  Sex: Male

DRUGS (1)
  1. AMLODIPINE BESYLATE [Suspect]
     Active Substance: AMLODIPINE BESYLATE
     Indication: Hypertension
     Route: 048

REACTIONS (12)
  - Lactic acidosis [Recovered/Resolved]
  - Overdose [Unknown]
  - Toxicity to various agents [Recovered/Resolved]
  - Hypotension [Recovered/Resolved]
  - Peripheral coldness [Recovered/Resolved]
  - Renal tubular necrosis [Recovered/Resolved]
  - Distributive shock [Recovered/Resolved]
  - Capillary leak syndrome [Recovered/Resolved]
  - Renal failure [Recovered/Resolved]
  - Acute respiratory distress syndrome [Recovered/Resolved]
  - Respiratory failure [Recovered/Resolved]
  - Acute kidney injury [Recovered/Resolved]
